FAERS Safety Report 5265703-8 (Version None)
Quarter: 2007Q1

REPORT INFORMATION
  Report Type: 
  Country: None (occurrence: None)
  Receive Date: 20061213
  Receipt Date: 20030604
  Transmission Date: 20070707
  Serious: Yes (Other)
  Sender: FDA-Public Use
  Company Number: 2003UW07148

PATIENT
  Sex: Male

DRUGS (2)
  1. IRESSA [Suspect]
     Indication: ADENOCARCINOMA
     Dates: start: 20030501
  2. FENTANYL [Concomitant]

REACTIONS (3)
  - DYSPHAGIA [None]
  - LYMPHADENOPATHY [None]
  - RETCHING [None]
